FAERS Safety Report 17435092 (Version 1)
Quarter: 2020Q1

REPORT INFORMATION
  Report Type: Spontaneous
  Country: US (occurrence: US)
  Receive Date: 20200219
  Receipt Date: 20200219
  Transmission Date: 20200409
  Serious: Yes (Hospitalization, Disabling, Other)
  Sender: FDA-Public Use
  Company Number: US-PFIZER INC-2020033242

PATIENT
  Age: 26 Year
  Sex: Male

DRUGS (2)
  1. MICRONASE [Suspect]
     Active Substance: GLYBURIDE
     Dosage: UNK (6 TABLETS)
     Route: 048
     Dates: start: 19881102
  2. ASPIRIN [ACETYLSALICYLIC ACID] [Suspect]
     Active Substance: ASPIRIN
     Indication: INFLUENZA
     Dosage: UNK

REACTIONS (3)
  - Accidental overdose [Unknown]
  - Brain injury [Unknown]
  - Hypoglycaemia [Unknown]

NARRATIVE: CASE EVENT DATE: 198811
